FAERS Safety Report 9352295 (Version 1)
Quarter: 2013Q2

REPORT INFORMATION
  Report Type: Spontaneous
  Country: FR (occurrence: FR)
  Receive Date: 20130617
  Receipt Date: 20130617
  Transmission Date: 20140414
  Serious: Yes (Other)
  Sender: FDA-Public Use
  Company Number: FR-JHP PHARMACEUTICALS, LLC-JHP201300365

PATIENT
  Age: 54 Year
  Sex: Male

DRUGS (1)
  1. DANTRIUM [Suspect]
     Indication: MUSCLE SPASTICITY
     Dosage: 100 MG, DAILY
     Route: 048

REACTIONS (2)
  - Lung adenocarcinoma [Unknown]
  - Intestinal adenocarcinoma [Unknown]
